FAERS Safety Report 15661315 (Version 1)
Quarter: 2018Q4

REPORT INFORMATION
  Report Type: Spontaneous
  Country: NL (occurrence: NL)
  Receive Date: 20181127
  Receipt Date: 20181127
  Transmission Date: 20190205
  Serious: Yes (Death, Hospitalization, Other)
  Sender: FDA-Public Use
  Company Number: NL-IMPAX LABORATORIES, LLC-2018-IPXL-03917

PATIENT
  Age: 65 Year
  Sex: Male

DRUGS (7)
  1. DIVALPROEX SODIUM ER [Suspect]
     Active Substance: DIVALPROEX SODIUM
     Dosage: BUILT UP TO 2500 MG
     Route: 048
  2. DIVALPROEX SODIUM ER [Suspect]
     Active Substance: DIVALPROEX SODIUM
     Dosage: 300 MILLIGRAM
     Route: 048
  3. DIVALPROEX SODIUM ER [Suspect]
     Active Substance: DIVALPROEX SODIUM
     Dosage: 600 MILLIGRAM
     Route: 048
  4. OLANZAPINE. [Suspect]
     Active Substance: OLANZAPINE
     Indication: BIPOLAR I DISORDER
     Dosage: 10 MILLIGRAM
     Route: 065
  5. DIVALPROEX SODIUM ER [Suspect]
     Active Substance: DIVALPROEX SODIUM
     Dosage: 1000 MILLIGRAM
     Route: 048
  6. DIVALPROEX SODIUM ER [Suspect]
     Active Substance: DIVALPROEX SODIUM
     Indication: BIPOLAR I DISORDER
     Dosage: 300 MILLIGRAM
     Route: 048
  7. DIVALPROEX SODIUM ER [Suspect]
     Active Substance: DIVALPROEX SODIUM
     Dosage: 3000 MILLIGRAM
     Route: 048

REACTIONS (17)
  - Dysphagia [Recovered/Resolved]
  - Haemodynamic instability [Unknown]
  - Tremor [Recovered/Resolved]
  - Somnolence [Recovered/Resolved]
  - Mania [Unknown]
  - Hypoalbuminaemia [Not Recovered/Not Resolved]
  - Micturition disorder [Recovered/Resolved]
  - Gait disturbance [Recovered/Resolved]
  - Toxicity to various agents [Recovered/Resolved]
  - Facial paresis [Unknown]
  - Hypokinesia [Recovered/Resolved]
  - Asthenia [Recovered/Resolved]
  - Malaise [Recovered/Resolved]
  - Sudden death [Fatal]
  - Pulmonary embolism [Not Recovered/Not Resolved]
  - Drug-disease interaction [Recovered/Resolved]
  - Delirium [Unknown]
